FAERS Safety Report 14664416 (Version 3)
Quarter: 2018Q2

REPORT INFORMATION
  Report Type: Report from Study
  Country: CA (occurrence: CA)
  Receive Date: 20180321
  Receipt Date: 20180403
  Transmission Date: 20180711
  Serious: Yes (Hospitalization, Other)
  Sender: FDA-Public Use
  Company Number: CA-GLAXOSMITHKLINE-CA2018GSK045740

PATIENT
  Sex: Male

DRUGS (1)
  1. MEPOLIZUMAB [Suspect]
     Active Substance: MEPOLIZUMAB
     Indication: ASTHMA
     Dosage: 100 MG, Z, (100MG ONCE MONTHLY)
     Route: 042

REACTIONS (5)
  - Asthma exercise induced [Unknown]
  - Asthma [Unknown]
  - Arrhythmia [Unknown]
  - Sleep apnoea syndrome [Unknown]
  - Oedema peripheral [Unknown]
